FAERS Safety Report 10044063 (Version 1)
Quarter: 2014Q1

REPORT INFORMATION
  Report Type: Spontaneous
  Country: US (occurrence: US)
  Receive Date: 20140328
  Receipt Date: 20140328
  Transmission Date: 20141002
  Serious: No
  Sender: FDA-Public Use
  Company Number: US-MYLANLABS-2013S1024534

PATIENT
  Age: 78 Year
  Sex: Female
  Weight: 72.58 kg

DRUGS (13)
  1. EMSAM (SELEGILINE TRANSDERMAL SYSTEM) [Suspect]
     Indication: DEPRESSION
     Dosage: CHANGE PATCH DAILY.
     Route: 062
     Dates: start: 20130920
  2. BYETTA [Concomitant]
     Indication: DIABETES MELLITUS
     Route: 058
  3. DEXILANT [Concomitant]
     Route: 048
  4. LORATADINE [Concomitant]
     Route: 048
  5. VENTOLIN [Concomitant]
     Dosage: SIG: 2 PUFFS Q 4 HOURS
     Route: 048
  6. EXELON [Concomitant]
  7. ABILIFY [Concomitant]
     Route: 048
  8. SEROQUEL [Concomitant]
     Route: 048
  9. NAMENDA [Concomitant]
     Route: 048
  10. METOPROLOL [Concomitant]
     Route: 048
  11. AZOR /06230801/ [Concomitant]
     Route: 048
  12. TAMSULOSIN HYDROCHLORIDE [Concomitant]
  13. SYMBICORT [Concomitant]
     Route: 048

REACTIONS (1)
  - Blood glucose increased [Not Recovered/Not Resolved]
